FAERS Safety Report 5759919-1 (Version None)
Quarter: 2008Q2

REPORT INFORMATION
  Report Type: 
  Country: None (occurrence: None)
  Receive Date: 20080605
  Receipt Date: 20080602
  Transmission Date: 20081010
  Serious: Yes (Hospitalization)
  Sender: FDA-Public Use
  Company Number: FR-BRISTOL-MYERS SQUIBB COMPANY-14214670

PATIENT
  Age: 63 Year
  Sex: Female

DRUGS (2)
  1. TAXOL [Suspect]
     Indication: OVARIAN CANCER
     Dosage: DAY1, DAY8, DAY 1 AND DAY 21.
     Route: 042
     Dates: start: 20070703, end: 20070717
  2. HYCAMTIN [Suspect]
     Indication: OVARIAN CANCER
     Dosage: DAY1, DAY8, DAY 1 AND DAY 21.
     Route: 042
     Dates: start: 20070703, end: 20070717

REACTIONS (5)
  - ANAEMIA [None]
  - CHEST PAIN [None]
  - ESCHERICHIA URINARY TRACT INFECTION [None]
  - INFECTION [None]
  - WHEEZING [None]
